FAERS Safety Report 10157025 (Version 1)
Quarter: 2014Q2

REPORT INFORMATION
  Report Type: Spontaneous
  Country: US (occurrence: US)
  Receive Date: 20140507
  Receipt Date: 20140507
  Transmission Date: 20141212
  Serious: No
  Sender: FDA-Public Use
  Company Number: US-PFIZER INC-2014124102

PATIENT
  Age: 51 Year
  Sex: Female

DRUGS (2)
  1. CHANTIX [Suspect]
     Indication: SMOKING CESSATION THERAPY
     Dosage: 5 MG, DAILY
  2. CHANTIX [Suspect]
     Dosage: 5 MG, 2X/DAY

REACTIONS (2)
  - Rash erythematous [Unknown]
  - Pruritus [Unknown]
